FAERS Safety Report 13655372 (Version 2)
Quarter: 2017Q2

REPORT INFORMATION
  Report Type: Report from Study
  Country: IT (occurrence: IT)
  Receive Date: 20170615
  Receipt Date: 20170623
  Transmission Date: 20170830
  Serious: Yes (Hospitalization)
  Sender: FDA-Public Use
  Company Number: IT-ACCORD-052629

PATIENT
  Age: 35 Year
  Sex: Female

DRUGS (4)
  1. FLUOXEREN [Suspect]
     Active Substance: FLUOXETINE HYDROCHLORIDE
     Dosage: STRENGTH: 20 MG
     Route: 048
     Dates: start: 20170315, end: 20170315
  2. DELORAZEPAM [Suspect]
     Active Substance: DELORAZEPAM
     Route: 048
     Dates: start: 20170315, end: 20170315
  3. TOPIRAMATE. [Suspect]
     Active Substance: TOPIRAMATE
     Route: 048
     Dates: start: 20170315, end: 20170315
  4. HALDOL [Suspect]
     Active Substance: HALOPERIDOL
     Dosage: STRENGTH: 2 MG/ML?1 BOTTLE
     Route: 048
     Dates: start: 20170315, end: 20170315

REACTIONS (4)
  - Mood altered [Recovered/Resolved]
  - Electrocardiogram abnormal [Recovered/Resolved]
  - Intentional self-injury [Recovered/Resolved]
  - Drug use disorder [Unknown]

NARRATIVE: CASE EVENT DATE: 20170315
